FAERS Safety Report 8465942 (Version 2)
Quarter: 2014Q1

REPORT INFORMATION
  Report Type: Spontaneous
  Country: US (occurrence: None)
  Receive Date: 20120229
  Receipt Date: 20130301
  Transmission Date: 20141002
  Serious: Yes (Hospitalization)
  Sender: FDA-Public Use
  Company Number: US-JNJFOC-20110302853

PATIENT
  Age: 54 Year
  Sex: Male

DRUGS (4)
  1. IBUPROFEN [Suspect]
     Indication: PAIN
     Dosage: 1200 MG, IN 1 DAY, ORAL
     Route: 048
     Dates: start: 20100701, end: 20110209
  2. UNSPECIFIED INGREDIENT [Suspect]
     Indication: NON-SMALL CELL LUNG CANCER
     Dosage: INTRAMUSCULAR
     Route: 030
  3. ALCOHOL (ETHANOL) [Suspect]
     Indication: PRODUCT USED FOR UNKNOWN INDICATION
  4. INFLUENZA VIRUS VACCINE POLYVALENT (INFLUENZA VIRUS VACCINE POLYVALENT) [Concomitant]

REACTIONS (1)
  - Gastritis [None]
